FAERS Safety Report 8082576-9 (Version None)
Quarter: 2012Q1

REPORT INFORMATION
  Report Type: 
  Country: None (occurrence: None)
  Receive Date: 20120127
  Receipt Date: 20110222
  Transmission Date: 20120608
  Serious: No
  Sender: FDA-Public Use
  Company Number: US-ABBOTT-11P-163-0706932-00

PATIENT
  Age: 59 Year
  Sex: Female

DRUGS (3)
  1. ULTRACET [Concomitant]
     Indication: PAIN
     Dosage: AS NEEDED
  2. AMBIEN [Concomitant]
     Indication: INSOMNIA
     Dosage: TAKES 1/3 OF THE PILL AS NEEDED
  3. HUMIRA [Suspect]
     Indication: RHEUMATOID ARTHRITIS

REACTIONS (3)
  - JOINT SWELLING [None]
  - ARTHRALGIA [None]
  - NODULE [None]
